FAERS Safety Report 11055098 (Version 1)
Quarter: 2015Q2

REPORT INFORMATION
  Report Type: Spontaneous
  Country: US (occurrence: None)
  Receive Date: 20150421
  Receipt Date: 20150421
  Transmission Date: 20150821
  Serious: Yes (Other)
  Sender: FDA-Public Use
  Company Number: None

PATIENT
  Age: 11 Year
  Sex: Male
  Weight: 37.65 kg

DRUGS (1)
  1. AMPHETAMINE-DEXTROAMPHETAMINE ER [Suspect]
     Active Substance: AMPHETAMINE\DEXTROAMPHETAMINE
     Indication: ATTENTION DEFICIT/HYPERACTIVITY DISORDER
     Dosage: 15 MG Q AM PO?
     Route: 048
     Dates: start: 201501, end: 201504

REACTIONS (4)
  - Product substitution issue [None]
  - Abnormal behaviour [None]
  - Disturbance in attention [None]
  - Aggression [None]

NARRATIVE: CASE EVENT DATE: 201501
